FAERS Safety Report 17031329 (Version 1)
Quarter: 2019Q4

REPORT INFORMATION
  Report Type: Spontaneous
  Country: US (occurrence: US)
  Receive Date: 20191011
  Receipt Date: 20191011
  Transmission Date: 20200122
  Serious: No
  Sender: FDA-Public Use
  Company Number: None

PATIENT
  Age: 78 Year
  Sex: Female
  Weight: 62.6 kg

DRUGS (16)
  1. PURELAX [Concomitant]
     Active Substance: POLYETHYLENE GLYCOL 3350
  2. MULTI VITAMIN [Concomitant]
     Active Substance: VITAMINS
  3. BIOTINE [Concomitant]
  4. SUPER OMEGA 3 FISH OIL [Concomitant]
  5. ACETAMINOPHEN. [Concomitant]
     Active Substance: ACETAMINOPHEN
  6. KLONOPIN [Concomitant]
     Active Substance: CLONAZEPAM
  7. AJOVY [Suspect]
     Active Substance: FREMANEZUMAB-VFRM
     Indication: MIGRAINE
     Dosage: ?          QUANTITY:1 SYRINGE;OTHER ROUTE:1 INJECTION SYRINGE?
     Dates: start: 20190703, end: 20190703
  8. PROBIOTIC [Concomitant]
     Active Substance: PROBIOTICS NOS
  9. VITAMIN B COMPLEX [Concomitant]
     Active Substance: CYANOCOBALAMIN\DEXPANTHENOL\NIACINAMIDE\PYRIDOXINE HYDROCHLORIDE\RIBOFLAVIN 5^-PHOSPHATE SODIUM\THIAMINE HYDROCHLORIDE\VITAMIN B COMPLEX
  10. VITAMIN D3 [Concomitant]
     Active Substance: CHOLECALCIFEROL
  11. LAMOTRIGINE. [Concomitant]
     Active Substance: LAMOTRIGINE
  12. VITAMIN B2 [Concomitant]
     Active Substance: RIBOFLAVIN
  13. CALCIUM CITRATE PLUS MAGNESIUM + VITAMIN D [Concomitant]
  14. SEROQUEL [Concomitant]
     Active Substance: QUETIAPINE FUMARATE
  15. MAGNESIUM [Concomitant]
     Active Substance: MAGNESIUM
  16. WELLBURIN XL [Concomitant]

REACTIONS (3)
  - Muscular weakness [None]
  - Eye pain [None]
  - Dizziness [None]

NARRATIVE: CASE EVENT DATE: 20190704
